FAERS Safety Report 7134105-1 (Version None)
Quarter: 2010Q4

REPORT INFORMATION
  Report Type: 
  Country: None (occurrence: None)
  Receive Date: 20101203
  Receipt Date: 20101201
  Transmission Date: 20110411
  Serious: Yes (Death, Life-Threatening, Hospitalization, Other)
  Sender: FDA-Public Use
  Company Number: FR-JNJFOC-20101200423

PATIENT
  Sex: Female

DRUGS (6)
  1. RISPERDAL [Suspect]
     Indication: DEMENTIA ALZHEIMER'S TYPE
     Route: 048
  2. EBIXA [Suspect]
     Indication: DEMENTIA ALZHEIMER'S TYPE
     Route: 048
     Dates: end: 20101023
  3. NOVONORM [Suspect]
     Indication: DIABETES MELLITUS
     Route: 048
  4. PREVISCAN (FLUINDIONE) [Suspect]
     Indication: ILL-DEFINED DISORDER
     Route: 048
  5. FUROSEMIDE [Suspect]
     Indication: HYPERTENSION
     Route: 048
  6. COVERSYL [Suspect]
     Indication: HYPERTENSION
     Route: 048

REACTIONS (1)
  - PANCREATITIS ACUTE [None]
